FAERS Safety Report 13048153 (Version 1)
Quarter: 2016Q4

REPORT INFORMATION
  Report Type: Spontaneous
  Country: US (occurrence: US)
  Receive Date: 20161220
  Receipt Date: 20161220
  Transmission Date: 20170207
  Serious: Yes (Other)
  Sender: FDA-Public Use
  Company Number: US-MYLANLABS-2016M1056813

PATIENT

DRUGS (1)
  1. URSODEOXYCHOLIC ACID [Suspect]
     Active Substance: URSODIOL
     Route: 064

REACTIONS (4)
  - Bradycardia foetal [Unknown]
  - Foetal exposure during pregnancy [Unknown]
  - Premature baby [Unknown]
  - Low birth weight baby [Unknown]
